FAERS Safety Report 11725558 (Version 2)
Quarter: 2016Q1

REPORT INFORMATION
  Report Type: Spontaneous
  Country: US (occurrence: US)
  Receive Date: 20151111
  Receipt Date: 20160203
  Transmission Date: 20160525
  Serious: No
  Sender: FDA-Public Use
  Company Number: US-UCBSA-2015025383

PATIENT

DRUGS (2)
  1. VIMPAT [Suspect]
     Active Substance: LACOSAMIDE
     Indication: SEIZURE
     Dosage: UNK
  2. KEPPRA [Suspect]
     Active Substance: LEVETIRACETAM
     Indication: SEIZURE
     Dosage: UNKNOWN DOSE

REACTIONS (7)
  - Amnesia [Unknown]
  - Agitation [Unknown]
  - Anger [Unknown]
  - Unevaluable event [Unknown]
  - Depression [Unknown]
  - Sleep disorder [Unknown]
  - Adverse drug reaction [Unknown]
